FAERS Safety Report 6012441-X (Version None)
Quarter: 2008Q4

REPORT INFORMATION
  Report Type: 
  Country: None (occurrence: None)
  Receive Date: 20081218
  Receipt Date: 20081209
  Transmission Date: 20090506
  Serious: Yes (Hospitalization, Other)
  Sender: FDA-Public Use
  Company Number: US-ELI_LILLY_AND_COMPANY-US200806002490

PATIENT
  Sex: Female

DRUGS (37)
  1. FORTEO [Suspect]
     Indication: OSTEOPOROSIS
     Dosage: UNK, UNK
     Dates: start: 20080502, end: 20080601
  2. FORTEO [Suspect]
     Dosage: UNK, UNK
     Dates: start: 20080601
  3. FORTEO [Suspect]
     Dates: start: 20081101
  4. TYLENOL                                 /SCH/ [Concomitant]
     Dosage: 1000 MG, 2/D
  5. NEXIUM [Concomitant]
     Dosage: 40 MG, 2/D
  6. GLUCOTROL [Concomitant]
     Dosage: 10 MG, EACH MORNING
  7. GLUCOTROL [Concomitant]
     Dosage: 5 MG, EACH MORNING
  8. GLUCOPHAGE [Concomitant]
     Dosage: 500 MG, 2/D
  9. LENOXIN [Concomitant]
     Dosage: 0.125 MG, DAILY (1/D)
  10. ALTACE [Concomitant]
  11. IPRATROPIUM BROMIDE [Concomitant]
  12. MIRALAX [Concomitant]
     Dosage: 17 G, DAILY (1/D)
  13. METAMUCIL [Concomitant]
     Dosage: 17 MG, DAILY (1/D)
  14. SULFACETAMIDE [Concomitant]
     Dosage: UNK, 2/D
  15. NEOMYCIN SULF/POLYMYXIN B SULF/DEXAMETHASONE [Concomitant]
     Dosage: UNK, AS NEEDED
  16. HYPOTEARS DDPF [Concomitant]
  17. ASMANEX TWISTHALER [Concomitant]
     Dosage: UNK, 2/D
  18. XOPENEX [Concomitant]
     Dosage: UNK, 3/D
  19. CARDIZEM SR [Concomitant]
     Dosage: 120 MG, 2/D
  20. LISINOPRIL [Concomitant]
     Dosage: 10 MG, 2/D
  21. IMDUR [Concomitant]
     Dosage: 30 MG, DAILY (1/D)
  22. LASIX [Concomitant]
     Dosage: 40 MG, DAILY (1/D)
  23. XANAX [Concomitant]
     Dosage: 0.125 MG, UNK
  24. ASPIRIN [Concomitant]
     Dosage: 162 MG, DAILY (1/D)
  25. SIMVASTATIN [Concomitant]
     Dosage: 10 MG, DAILY (1/D)
  26. NITROGLYCERIN [Concomitant]
     Dosage: 0.4 MG, AS NEEDED
  27. ATROVENT [Concomitant]
     Dosage: UNK, 2/D
  28. SINGULAIR [Concomitant]
     Dosage: 10 MG, DAILY (1/D)
  29. MYCELEX [Concomitant]
  30. CENTRUM [Concomitant]
     Dosage: UNK, DAILY (1/D)
  31. CALCIUM CARBONATE [Concomitant]
     Dosage: 500 MG, 2/D
  32. ERGOCALCIFEROL [Concomitant]
     Dosage: 125 MG, 2/D
  33. ASCORBIC ACID [Concomitant]
     Dosage: 500 MG, 2/D
  34. VITAMIN E [Concomitant]
     Dosage: 400 IU, DAILY (1/D)
  35. GARLIC [Concomitant]
     Dosage: 167 MG, DAILY (1/D)
  36. FISH OIL [Concomitant]
     Dosage: 1000 MG, 2/D
  37. CRANBERRY [Concomitant]
     Dosage: 1680 MG, DAILY (1/D)

REACTIONS (14)
  - BACK PAIN [None]
  - BONE PAIN [None]
  - FEELING ABNORMAL [None]
  - HOSPITALISATION [None]
  - MUSCLE SPASMS [None]
  - NERVOUSNESS [None]
  - OEDEMA PERIPHERAL [None]
  - PAIN [None]
  - PROCEDURAL COMPLICATION [None]
  - SPINAL COLUMN STENOSIS [None]
  - SURGERY [None]
  - URINARY TRACT INFECTION [None]
  - WOUND [None]
  - WRONG TECHNIQUE IN DRUG USAGE PROCESS [None]
